FAERS Safety Report 13054790 (Version 2)
Quarter: 2016Q4

REPORT INFORMATION
  Report Type: Spontaneous
  Country: US (occurrence: US)
  Receive Date: 20161222
  Receipt Date: 20161228
  Transmission Date: 20170207
  Serious: Yes (Other)
  Sender: FDA-Public Use
  Company Number: US-SAOL THERAPEUTICS-2016SAO01259

PATIENT
  Age: 53 Year
  Sex: Male

DRUGS (3)
  1. BACLOFEN. [Suspect]
     Active Substance: BACLOFEN
     Indication: MUSCLE SPASTICITY
     Dosage: 285 ?G, \DAY
     Route: 037
     Dates: end: 20161215
  2. BACLOFEN. [Concomitant]
     Active Substance: BACLOFEN
     Dosage: 20 MG, 3X/DAY
     Route: 048
  3. BACLOFEN. [Suspect]
     Active Substance: BACLOFEN
     Indication: SPINAL CORD INJURY
     Dosage: 150 ?G, \DAY
     Dates: start: 20161215

REACTIONS (4)
  - Drug dose omission [Unknown]
  - Muscular weakness [Unknown]
  - Drug withdrawal syndrome [Unknown]
  - Device alarm issue [Unknown]

NARRATIVE: CASE EVENT DATE: 201611
